FAERS Safety Report 18994485 (Version 1)
Quarter: 2021Q1

REPORT INFORMATION
  Report Type: Spontaneous
  Country: US (occurrence: US)
  Receive Date: 20210311
  Receipt Date: 20210311
  Transmission Date: 20210420
  Serious: No
  Sender: FDA-Public Use
  Company Number: US-LUNDBECK-DKLU3029584

PATIENT
  Age: 69 Year
  Sex: Male

DRUGS (3)
  1. NORTHERA [Suspect]
     Active Substance: DROXIDOPA
     Indication: PARKINSON^S DISEASE
     Route: 048
  2. NORTHERA [Suspect]
     Active Substance: DROXIDOPA
     Indication: BLOOD PRESSURE DECREASED
     Dosage: SCHEDULE A
     Route: 048
     Dates: start: 202101
  3. NORTHERA [Suspect]
     Active Substance: DROXIDOPA
     Indication: MENTAL STATUS CHANGES
     Route: 048
     Dates: start: 20210128

REACTIONS (3)
  - Blood pressure increased [Not Recovered/Not Resolved]
  - Supine hypertension [Not Recovered/Not Resolved]
  - Blood pressure fluctuation [Not Recovered/Not Resolved]
